FAERS Safety Report 6666577-0 (Version None)
Quarter: 2010Q2

REPORT INFORMATION
  Report Type: 
  Country: None (occurrence: None)
  Receive Date: 20100404
  Receipt Date: 20100208
  Transmission Date: 20101027
  Serious: No
  Sender: FDA-Public Use
  Company Number: US-ALLERGAN-1001638US

PATIENT
  Sex: Female

DRUGS (3)
  1. BRIMONIDINE TARTRATE [Suspect]
     Indication: GLAUCOMA
     Dosage: UNK
  2. TIMOLOL MALEATE [Suspect]
     Indication: DRUG USE FOR UNKNOWN INDICATION
  3. XALATAN [Concomitant]

REACTIONS (2)
  - EYELID PTOSIS [None]
  - LACRIMATION INCREASED [None]
